FAERS Safety Report 8200556-7 (Version None)
Quarter: 2012Q1

REPORT INFORMATION
  Report Type: 
  Country: None (occurrence: None)
  Receive Date: 20120307
  Receipt Date: 20120224
  Transmission Date: 20120608
  Serious: Yes (Other)
  Sender: FDA-Public Use
  Company Number: 2012SP010799

PATIENT
  Age: 76 Year
  Sex: Male

DRUGS (2)
  1. PAROXETINE HYDROCHLORIDE [Concomitant]
  2. MIRTAZAPINE [Suspect]
     Indication: MAJOR DEPRESSION
     Dosage: 15 MG;QPM

REACTIONS (5)
  - SEDATION [None]
  - VOMITING [None]
  - DIARRHOEA [None]
  - SUICIDAL IDEATION [None]
  - SOMNOLENCE [None]
